FAERS Safety Report 4926484-8 (Version None)
Quarter: 2006Q1

REPORT INFORMATION
  Report Type: 
  Country: None (occurrence: None)
  Receive Date: 20060228
  Receipt Date: 20051205
  Transmission Date: 20060701
  Serious: Yes (Life-Threatening, Hospitalization, Disabling, Other)
  Sender: FDA-Public Use
  Company Number: US-GLAXOSMITHKLINE-A0584855A

PATIENT
  Age: 47 Year
  Sex: Female
  Weight: 90.9 kg

DRUGS (3)
  1. LAMICTAL [Suspect]
     Indication: BIPOLAR II DISORDER
     Dosage: 25MG IN THE MORNING
     Route: 048
     Dates: start: 20051117, end: 20051120
  2. ANTICHOLINERGIC [Suspect]
     Indication: DRUG USE FOR UNKNOWN INDICATION
     Route: 065
  3. DEPAKOTE [Concomitant]
     Indication: BIPOLAR II DISORDER
     Dosage: 500MG TWICE PER DAY
     Route: 048

REACTIONS (11)
  - BLISTER [None]
  - DELIRIUM [None]
  - DYSURIA [None]
  - HEADACHE [None]
  - MUCOSAL ULCERATION [None]
  - ODYNOPHAGIA [None]
  - ORAL MUCOSAL EXFOLIATION [None]
  - PYREXIA [None]
  - RASH MACULO-PAPULAR [None]
  - RESPIRATORY DISTRESS [None]
  - STEVENS-JOHNSON SYNDROME [None]
